FAERS Safety Report 7704869-4 (Version None)
Quarter: 2011Q3

REPORT INFORMATION
  Report Type: 
  Country: None (occurrence: None)
  Receive Date: 20110823
  Receipt Date: 20110808
  Transmission Date: 20111222
  Serious: Yes (Other)
  Sender: FDA-Public Use
  Company Number: TN-WATSON-2011-13255

PATIENT
  Age: 24 Year
  Sex: Female

DRUGS (1)
  1. FUROSEMIDE [Suspect]
     Indication: GLOMERULONEPHRITIS
     Dosage: 40 MG, DAILY

REACTIONS (1)
  - DERMATITIS BULLOUS [None]
